FAERS Safety Report 12615337 (Version 1)
Quarter: 2016Q3

REPORT INFORMATION
  Report Type: Spontaneous
  Country: US (occurrence: US)
  Receive Date: 20160802
  Receipt Date: 20160802
  Transmission Date: 20161109
  Serious: No
  Sender: FDA-Public Use
  Company Number: US-TARO-2016TAR00314

PATIENT
  Sex: Male

DRUGS (1)
  1. FLUOCINONIDE CREAM [Suspect]
     Active Substance: FLUOCINONIDE
     Route: 061

REACTIONS (1)
  - Drug effect incomplete [Unknown]
